FAERS Safety Report 25615291 (Version 1)
Quarter: 2025Q3

REPORT INFORMATION
  Report Type: Report from Study
  Country: US (occurrence: US)
  Receive Date: 20250729
  Receipt Date: 20250729
  Transmission Date: 20251021
  Serious: Yes (Hospitalization, Other)
  Sender: ABBVIE
  Company Number: US-ABBVIE-6386799

PATIENT
  Sex: Female

DRUGS (1)
  1. CREON [Suspect]
     Active Substance: PANCRELIPASE AMYLASE\PANCRELIPASE LIPASE\PANCRELIPASE PROTEASE
     Indication: Product used for unknown indication
     Route: 048

REACTIONS (7)
  - Pancreatic carcinoma [Unknown]
  - Aspiration [Recovered/Resolved]
  - Full blood count decreased [Unknown]
  - Blood magnesium decreased [Unknown]
  - Pneumonia [Recovered/Resolved]
  - Product use complaint [Unknown]
  - Pain [Unknown]
